FAERS Safety Report 11640937 (Version 1)
Quarter: 2015Q4

REPORT INFORMATION
  Report Type: Spontaneous
  Country: IT (occurrence: IT)
  Receive Date: 20151019
  Receipt Date: 20151019
  Transmission Date: 20160304
  Serious: Yes (Hospitalization)
  Sender: FDA-Public Use
  Company Number: IT-PFIZER INC-2015346484

PATIENT
  Age: 47 Year
  Sex: Female

DRUGS (2)
  1. COLIMICINA [Suspect]
     Active Substance: COLISTIN SULFATE
     Indication: ABDOMINAL WOUND DEHISCENCE
     Dosage: 4500000 IU, DAILY
     Route: 042
     Dates: start: 20151002, end: 20151004
  2. TYGACIL [Suspect]
     Active Substance: TIGECYCLINE
     Indication: ABDOMINAL WOUND DEHISCENCE
     Dosage: 100 MG, DAILY
     Route: 042
     Dates: start: 20151002, end: 20151004

REACTIONS (3)
  - Paraesthesia [Recovered/Resolved]
  - Paraesthesia oral [Recovered/Resolved]
  - Sopor [Recovered/Resolved]

NARRATIVE: CASE EVENT DATE: 20151002
